FAERS Safety Report 12338545 (Version 1)
Quarter: 2016Q2

REPORT INFORMATION
  Report Type: Spontaneous
  Country: NL (occurrence: NL)
  Receive Date: 20160505
  Receipt Date: 20160505
  Transmission Date: 20160815
  Serious: Yes (Other)
  Sender: FDA-Public Use
  Company Number: NL-TEVA-657184ISR

PATIENT
  Sex: Male

DRUGS (5)
  1. CISPLATIN. [Suspect]
     Active Substance: CISPLATIN
     Indication: CONGENITAL TERATOMA
     Route: 065
     Dates: start: 1991
  2. VINBLASTINE [Suspect]
     Active Substance: VINBLASTINE
     Indication: CONGENITAL TERATOMA
     Route: 065
     Dates: start: 1991
  3. ETOPOSIDE. [Suspect]
     Active Substance: ETOPOSIDE
     Indication: CONGENITAL TERATOMA
     Route: 065
     Dates: start: 1991
  4. IFOSFAMIDE. [Suspect]
     Active Substance: IFOSFAMIDE
     Indication: CONGENITAL TERATOMA
     Route: 065
     Dates: start: 1991
  5. BLEOMYCIN [Suspect]
     Active Substance: BLEOMYCIN SULFATE
     Indication: CONGENITAL TERATOMA
     Route: 065
     Dates: start: 1991

REACTIONS (3)
  - Renal impairment [Unknown]
  - Deafness [Unknown]
  - Epiphysiolysis [Unknown]
